FAERS Safety Report 9259624 (Version 1)
Quarter: 2013Q2

REPORT INFORMATION
  Report Type: Report from Study
  Country: FR (occurrence: FR)
  Receive Date: 20130429
  Receipt Date: 20130429
  Transmission Date: 20140414
  Serious: Yes (Other)
  Sender: FDA-Public Use
  Company Number: FR-UCBSA-084272

PATIENT
  Age: 73 Year
  Sex: Female
  Weight: 70 kg

DRUGS (10)
  1. CIMZIA [Suspect]
     Indication: RHEUMATOID ARTHRITIS
     Route: 058
     Dates: end: 20130212
  2. CIMZIA [Suspect]
     Indication: RHEUMATOID ARTHRITIS
     Route: 058
     Dates: start: 201203
  3. LAMALINE [Concomitant]
     Indication: PAIN
     Route: 048
  4. PREVISCAN [Concomitant]
     Indication: PHLEBITIS
     Route: 048
  5. SEROPLEX [Concomitant]
     Indication: DEPRESSION
     Route: 048
  6. ADROVANCE [Concomitant]
     Indication: OSTEOPOROSIS
     Route: 048
  7. RAMIPRIL [Concomitant]
     Indication: HYPERTENSION
     Route: 048
  8. IXPRIM [Concomitant]
     Indication: PAIN
  9. SKENAN [Concomitant]
     Indication: PAIN
  10. ADROVANCE [Concomitant]
     Indication: OSTEOPOROSIS
     Route: 048

REACTIONS (2)
  - Superinfection bacterial [Recovered/Resolved]
  - Influenza [Recovered/Resolved]
